FAERS Safety Report 8303681-5 (Version None)
Quarter: 2012Q2

REPORT INFORMATION
  Report Type: 
  Country: None (occurrence: None)
  Receive Date: 20120418
  Receipt Date: 20120403
  Transmission Date: 20120825
  Serious: Yes (Hospitalization)
  Sender: FDA-Public Use
  Company Number: FR-20120074

PATIENT
  Age: 48 Year
  Sex: Male

DRUGS (2)
  1. LIPIODOL (ETHIODIZED OIL) [Suspect]
     Indication: THERAPEUTIC EMBOLISATION
     Dosage: UNK
     Route: 013
     Dates: start: 20120116
  2. ZAVEDOS (IDARUBICINE) [Suspect]
     Indication: THERAPEUTIC EMBOLISATION
     Dosage: UNK
     Route: 013
     Dates: start: 20120116

REACTIONS (6)
  - COLITIS [None]
  - PORTAL HYPERTENSION [None]
  - HEPATIC VEIN THROMBOSIS [None]
  - HYPOKALAEMIA [None]
  - ASCITES [None]
  - NEOPLASM [None]
